FAERS Safety Report 7275672-7 (Version None)
Quarter: 2011Q1

REPORT INFORMATION
  Report Type: 
  Country: None (occurrence: None)
  Receive Date: 20110204
  Receipt Date: 20110126
  Transmission Date: 20110831
  Serious: Yes (Life-Threatening)
  Sender: FDA-Public Use
  Company Number: NL-JNJFOC-20110107402

PATIENT
  Sex: Male

DRUGS (3)
  1. AZATHIOPRINE [Concomitant]
  2. REMICADE [Suspect]
     Indication: PRODUCT USED FOR UNKNOWN INDICATION
     Route: 042
  3. CALCICHEW D3 [Concomitant]

REACTIONS (1)
  - PERIPHERAL T-CELL LYMPHOMA UNSPECIFIED [None]
